FAERS Safety Report 13698718 (Version 1)
Quarter: 2017Q2

REPORT INFORMATION
  Report Type: Spontaneous
  Country: US (occurrence: US)
  Receive Date: 20170628
  Receipt Date: 20170628
  Transmission Date: 20170830
  Serious: No
  Sender: FDA-Public Use
  Company Number: US-TEVA-782478ACC

PATIENT
  Sex: Female

DRUGS (8)
  1. LISINOPRIL. [Concomitant]
     Active Substance: LISINOPRIL
  2. POTASSIUM [Concomitant]
     Active Substance: POTASSIUM
  3. SIMVASTATIN. [Concomitant]
     Active Substance: SIMVASTATIN
  4. PLAVIX [Concomitant]
     Active Substance: CLOPIDOGREL BISULFATE
  5. SYNRIBO [Suspect]
     Active Substance: OMACETAXINE MEPESUCCINATE
     Dosage: 1.75 MG/0.05ML, FREQUENCY: ONE SYRINGE 2 TIMES A DAY
  6. GABAPENTIN. [Concomitant]
     Active Substance: GABAPENTIN
  7. METOPROLOL. [Concomitant]
     Active Substance: METOPROLOL
  8. K-PHOS [Concomitant]
     Active Substance: POTASSIUM PHOSPHATE, MONOBASIC

REACTIONS (1)
  - Platelet count decreased [Unknown]
